FAERS Safety Report 26070375 (Version 1)
Quarter: 2025Q4

REPORT INFORMATION
  Report Type: Spontaneous
  Country: US (occurrence: US)
  Receive Date: 20251120
  Receipt Date: 20251120
  Transmission Date: 20260118
  Serious: No
  Sender: BIOVITRUM
  Company Number: US-BIOVITRUM-2025-US-015958

PATIENT
  Age: 93 Year
  Sex: Female

DRUGS (1)
  1. PACRITINIB [Suspect]
     Active Substance: PACRITINIB
     Indication: Myelofibrosis

REACTIONS (1)
  - Diarrhoea [Unknown]
